FAERS Safety Report 5237559-0 (Version None)
Quarter: 2007Q1

REPORT INFORMATION
  Report Type: 
  Country: None (occurrence: None)
  Receive Date: 20070213
  Receipt Date: 20070130
  Transmission Date: 20070707
  Serious: Yes (Hospitalization, Other)
  Sender: FDA-Public Use
  Company Number: US-PFIZER INC-2007008545

PATIENT
  Sex: Male

DRUGS (2)
  1. BEXTRA [Suspect]
     Indication: ARTHRITIS
     Route: 048
  2. BEXTRA [Suspect]
     Indication: PAIN

REACTIONS (1)
  - CEREBROVASCULAR ACCIDENT [None]
